FAERS Safety Report 5831583-2 (Version None)
Quarter: 2008Q3

REPORT INFORMATION
  Report Type: 
  Country: None (occurrence: None)
  Receive Date: 20080730
  Receipt Date: 20080717
  Transmission Date: 20090109
  Serious: Yes (Hospitalization)
  Sender: FDA-Public Use
  Company Number: 2008AL006879

PATIENT
  Age: 58 Year
  Sex: Female
  Weight: 124.7392 kg

DRUGS (10)
  1. DIGOXIN [Suspect]
     Indication: ARRHYTHMIA
     Dosage: 0.25 MG DAILY PO
     Route: 048
  2. CARDIA [Concomitant]
  3. ASACOL [Concomitant]
  4. LASIX [Concomitant]
  5. NEXIUM [Concomitant]
  6. POTASSIUM CHLORIDE [Concomitant]
  7. SYNTHROID [Concomitant]
  8. MEDROL [Concomitant]
  9. MUCENEX [Concomitant]
  10. ALDACTONE [Concomitant]

REACTIONS (3)
  - CARDIOACTIVE DRUG LEVEL ABOVE THERAPEUTIC [None]
  - GASTRIC DISORDER [None]
  - THERAPEUTIC AGENT TOXICITY [None]
